FAERS Safety Report 18297028 (Version 1)
Quarter: 2020Q3

REPORT INFORMATION
  Report Type: Spontaneous
  Country: CN (occurrence: CN)
  Receive Date: 20200922
  Receipt Date: 20200922
  Transmission Date: 20201103
  Serious: No
  Sender: FDA-Public Use
  Company Number: CN-TOLMAR, INC.-20CN022838

PATIENT

DRUGS (2)
  1. ELIGARD [Suspect]
     Active Substance: LEUPROLIDE ACETATE
     Indication: SHORT STATURE
     Dosage: 3.75 MG, Q 1 MONTH
     Route: 058
  2. HUMAN GROWTH HORMONE, RECOMBINANT [Suspect]
     Active Substance: SOMATROPIN
     Indication: SHORT STATURE
     Dosage: 0.045 MILLIGRAM/KILOGRAM, QD AND ADJUSTED ACCORDING TO THE GROWTH RATE AND IGF?1 LEVEL
     Route: 065

REACTIONS (2)
  - Headache [Unknown]
  - Off label use [Unknown]
